FAERS Safety Report 6940609-4 (Version None)
Quarter: 2010Q3

REPORT INFORMATION
  Report Type: 
  Country: None (occurrence: None)
  Receive Date: 20100825
  Receipt Date: 20100811
  Transmission Date: 20110219
  Serious: Yes (Other)
  Sender: FDA-Public Use
  Company Number: PHHY2010US53014

PATIENT
  Age: 11 Year
  Sex: Male

DRUGS (10)
  1. RITALIN LA [Suspect]
     Indication: ATTENTION DEFICIT/HYPERACTIVITY DISORDER
     Dosage: 20 MG PER DAY
  2. FOCALIN XR [Suspect]
     Indication: ATTENTION DEFICIT/HYPERACTIVITY DISORDER
     Dosage: 20 MG PER DAY
  3. FOCALIN [Suspect]
     Indication: ATTENTION DEFICIT/HYPERACTIVITY DISORDER
     Dosage: 20 MG PER DAY
  4. ADDERALL 10 [Suspect]
     Indication: ATTENTION DEFICIT/HYPERACTIVITY DISORDER
     Dosage: 22.5 MG PER DAY
  5. ADDERALL XR 10 [Suspect]
     Indication: ATTENTION DEFICIT/HYPERACTIVITY DISORDER
     Dosage: 15 MG PER DAY
  6. CONCERTA [Suspect]
     Indication: ATTENTION DEFICIT/HYPERACTIVITY DISORDER
     Dosage: 18 MG PER DAY
  7. CONCERTA [Suspect]
     Dosage: 63 MG PER DAY
  8. SEROQUEL [Concomitant]
     Indication: BIPOLAR DISORDER
     Dosage: UNK
  9. ABILIFY [Concomitant]
     Indication: BIPOLAR DISORDER
  10. EQUETRO [Concomitant]

REACTIONS (15)
  - CYANOSIS [None]
  - EXCORIATION [None]
  - FEELING COLD [None]
  - HYPERAEMIA [None]
  - HYPOAESTHESIA [None]
  - NAIL DISCOLOURATION [None]
  - PAIN [None]
  - PARAESTHESIA [None]
  - PERIPHERAL VASCULAR DISORDER [None]
  - RAYNAUD'S PHENOMENON [None]
  - SKIN CHAPPED [None]
  - SKIN DISCOLOURATION [None]
  - TACHYCARDIA [None]
  - VASOSPASM [None]
  - VOMITING [None]
